FAERS Safety Report 9580567 (Version 1)
Quarter: 2013Q3

REPORT INFORMATION
  Report Type: Spontaneous
  Country: US (occurrence: None)
  Receive Date: 20130916
  Receipt Date: 20130916
  Transmission Date: 20140515
  Serious: Yes (Other)
  Sender: FDA-Public Use
  Company Number: JPI-P-033337

PATIENT
  Age: 59 Year
  Sex: Male
  Weight: 79.38 kg

DRUGS (6)
  1. XYREM [Suspect]
     Route: 048
     Dates: start: 20130609, end: 201306
  2. XYREM [Suspect]
     Route: 048
     Dates: start: 20130609, end: 201306
  3. NEBIVOLOL [Concomitant]
  4. AMLODIPINE BESYLATE [Concomitant]
  5. METHOTREXATE [Concomitant]
  6. PREDNISONE [Concomitant]

REACTIONS (4)
  - Hypertension [None]
  - Condition aggravated [None]
  - Insomnia [None]
  - Ejaculation disorder [None]
